FAERS Safety Report 7519541-3 (Version None)
Quarter: 2011Q2

REPORT INFORMATION
  Report Type: 
  Country: None (occurrence: None)
  Receive Date: 20110524
  Receipt Date: 20110509
  Transmission Date: 20111010
  Serious: Yes (Hospitalization, Other)
  Sender: FDA-Public Use
  Company Number: AUR-APL-2011-01652

PATIENT
  Age: 42 Year
  Sex: Male

DRUGS (9)
  1. QUETIAPINE [Suspect]
  2. PROPRANOLOL [Suspect]
  3. CITALOPRAM [Suspect]
     Indication: SCHIZOPHRENIA
  4. CITALOPRAM [Suspect]
     Indication: DEPRESSION
  5. FENOFIBRATE [Suspect]
     Indication: DYSLIPIDAEMIA
  6. ATORVASTATIN [Suspect]
     Indication: DYSLIPIDAEMIA
  7. ASPIRIN [Suspect]
     Indication: DEEP VEIN THROMBOSIS
  8. DICLOFENAC SODIUM [Suspect]
     Indication: PAIN IN EXTREMITY
  9. WARFARIN SODIUM [Suspect]
     Indication: DEEP VEIN THROMBOSIS

REACTIONS (15)
  - OEDEMA PERIPHERAL [None]
  - INJECTION SITE DISCHARGE [None]
  - PURPURA [None]
  - ECCHYMOSIS [None]
  - DRUG INTERACTION [None]
  - HAEMATOMA [None]
  - SNEEZING [None]
  - MYALGIA [None]
  - EXTRADURAL HAEMATOMA [None]
  - ARTHRALGIA [None]
  - MELAENA [None]
  - SPINAL CORD COMPRESSION [None]
  - SPINAL EPIDURAL HAEMORRHAGE [None]
  - PAIN IN EXTREMITY [None]
  - HYPOVOLAEMIC SHOCK [None]
